FAERS Safety Report 7120070-X (Version None)
Quarter: 2010Q4

REPORT INFORMATION
  Report Type: 
  Country: None (occurrence: None)
  Receive Date: 20101123
  Receipt Date: 20101118
  Transmission Date: 20110411
  Serious: Yes (Hospitalization, Congenital Anomaly, Other)
  Sender: FDA-Public Use
  Company Number: US-PFIZER INC-2010092589

PATIENT
  Sex: Male
  Weight: 3 kg

DRUGS (8)
  1. ZOLOFT [Suspect]
     Dosage: 50 MG, UNK
     Route: 064
  2. ZOLOFT [Suspect]
     Dosage: 100 MG, UNK
     Route: 064
  3. ENALAPRIL [Concomitant]
     Dosage: UNK
  4. PRILOSEC [Concomitant]
  5. ASA [Concomitant]
     Dosage: HALF TABLET ONCE DAILY
  6. REGLAN [Concomitant]
  7. PROTONIX [Concomitant]
  8. PREVACID [Concomitant]

REACTIONS (22)
  - ATRIAL SEPTAL DEFECT [None]
  - BULIMIA NERVOSA [None]
  - CARDIOMEGALY [None]
  - COGNITIVE DISORDER [None]
  - CYANOSIS [None]
  - DEVELOPMENTAL DELAY [None]
  - DRUG EXPOSURE DURING PREGNANCY [None]
  - DYSPNOEA [None]
  - FAILURE TO THRIVE [None]
  - HEART DISEASE CONGENITAL [None]
  - HEPATOMEGALY [None]
  - HYPOPLASTIC LEFT HEART SYNDROME [None]
  - LUNG DISORDER [None]
  - MENTAL IMPAIRMENT [None]
  - MOTOR DYSFUNCTION [None]
  - PNEUMONIA [None]
  - RESPIRATORY DISTRESS [None]
  - RESPIRATORY MUSCLE WEAKNESS [None]
  - TACHYPNOEA [None]
  - TRICUSPID VALVE INCOMPETENCE [None]
  - UPPER RESPIRATORY TRACT INFECTION [None]
  - VIRAL INFECTION [None]
